FAERS Safety Report 16000171 (Version 1)
Quarter: 2019Q1

REPORT INFORMATION
  Report Type: Spontaneous
  Country: US (occurrence: US)
  Receive Date: 20190225
  Receipt Date: 20190225
  Transmission Date: 20190418
  Serious: No
  Sender: FDA-Public Use
  Company Number: US-BAYER-2019-039247

PATIENT
  Sex: Female

DRUGS (4)
  1. CLARITIN [Suspect]
     Active Substance: LORATADINE
     Indication: RHINORRHOEA
     Route: 048
  2. CLARITIN [Suspect]
     Active Substance: LORATADINE
     Indication: NASOPHARYNGITIS
  3. CLARITIN [Suspect]
     Active Substance: LORATADINE
     Indication: COUGH
  4. CLARITIN [Suspect]
     Active Substance: LORATADINE
     Indication: HYPERSENSITIVITY

REACTIONS (2)
  - Drug ineffective [Unknown]
  - Drug ineffective for unapproved indication [Unknown]
